FAERS Safety Report 14385356 (Version 2)
Quarter: 2018Q1

REPORT INFORMATION
  Report Type: Spontaneous
  Country: US (occurrence: US)
  Receive Date: 20180115
  Receipt Date: 20180115
  Transmission Date: 20180509
  Serious: Yes (Other)
  Sender: FDA-Public Use
  Company Number: US-SA-2016SA229039

PATIENT
  Age: 62 Year
  Sex: Female
  Weight: 69.85 kg

DRUGS (7)
  1. INSULIN [Concomitant]
     Active Substance: INSULIN NOS
     Route: 065
     Dates: start: 19920101
  2. NORVASC [Concomitant]
     Active Substance: AMLODIPINE BESYLATE
  3. TAXOTERE [Suspect]
     Active Substance: DOCETAXEL
     Indication: INVASIVE DUCTAL BREAST CARCINOMA
     Dosage: DOSE 75 M2
     Route: 051
     Dates: start: 20110301, end: 20110301
  4. FEMARA [Concomitant]
     Active Substance: LETROZOLE
     Route: 065
     Dates: start: 20110928
  5. PARAPLATIN [Concomitant]
     Active Substance: CARBOPLATIN
  6. TAXOTERE [Suspect]
     Active Substance: DOCETAXEL
     Indication: INVASIVE DUCTAL BREAST CARCINOMA
     Dosage: DOSE 75 M2
     Route: 051
     Dates: start: 20110614, end: 20110614
  7. AMLODIPINE [Concomitant]
     Active Substance: AMLODIPINE BESYLATE
     Route: 065
     Dates: start: 20040101

REACTIONS (6)
  - Alopecia [Not Recovered/Not Resolved]
  - Pain [Unknown]
  - Psychological trauma [Unknown]
  - Impaired quality of life [Unknown]
  - Emotional distress [Unknown]
  - Anxiety [Unknown]

NARRATIVE: CASE EVENT DATE: 20120301
